FAERS Safety Report 9775210 (Version 1)
Quarter: 2013Q4

REPORT INFORMATION
  Report Type: Spontaneous
  Country: US (occurrence: US)
  Receive Date: 20131220
  Receipt Date: 20131220
  Transmission Date: 20140711
  Serious: No
  Sender: FDA-Public Use
  Company Number: US-GALDERMA-US13002960

PATIENT
  Age: 30 Year
  Sex: Female

DRUGS (4)
  1. MIRVASO (BRIMONIDINE) TOPICAL GEL, 0.33% [Suspect]
     Indication: ROSACEA
     Dosage: 0.33%
     Route: 061
     Dates: start: 20130917
  2. DARPHIN SOOTHING CLEANSER [Suspect]
     Indication: THERAPEUTIC SKIN CARE TOPICAL
     Route: 061
     Dates: start: 20130917
  3. DARPHIN HYDRATING MOISTURIZER [Suspect]
     Indication: DRY SKIN PROPHYLAXIS
     Route: 061
     Dates: start: 20130917
  4. SKINCEUTICALS CE FERULIC [Suspect]
     Dosage: 5 GTTS
     Route: 061
     Dates: start: 20130918

REACTIONS (2)
  - Condition aggravated [Recovered/Resolved]
  - Flushing [Recovered/Resolved]
